FAERS Safety Report 4851155-6 (Version None)
Quarter: 2005Q4

REPORT INFORMATION
  Report Type: 
  Country: None (occurrence: None)
  Receive Date: 20051212
  Receipt Date: 20051107
  Transmission Date: 20060501
  Serious: Yes (Other)
  Sender: FDA-Public Use
  Company Number: SI-BRISTOL-MYERS SQUIBB COMPANY-13173166

PATIENT
  Age: 50 Year
  Sex: Female

DRUGS (5)
  1. ABILIFY [Suspect]
     Indication: PARANOIA
     Route: 048
     Dates: start: 20050928, end: 20051018
  2. RISPERIDONE [Concomitant]
     Route: 048
     Dates: start: 20000830, end: 20050930
  3. CIPRALEX [Concomitant]
     Route: 048
     Dates: start: 20031230
  4. ZOLPIDEM TARTRATE [Concomitant]
     Route: 048
  5. LORAZEPAM [Concomitant]
     Route: 048

REACTIONS (4)
  - HEADACHE [None]
  - HEART RATE IRREGULAR [None]
  - LABILE BLOOD PRESSURE [None]
  - PALPITATIONS [None]
